FAERS Safety Report 15450980 (Version 2)
Quarter: 2018Q4

REPORT INFORMATION
  Report Type: Report from Study
  Country: None (occurrence: HU)
  Receive Date: 20181001
  Receipt Date: 20181009
  Transmission Date: 20190204
  Serious: Yes (Hospitalization)
  Sender: FDA-Public Use
  Company Number: HU-ABBVIE-18S-076-2502748-00

PATIENT
  Age: 65 Year
  Sex: Male

DRUGS (7)
  1. XANAX [Concomitant]
     Active Substance: ALPRAZOLAM
     Indication: DEPRESSION
     Dosage: MORNING, NOON:1-1 TBL, EVENING: 2 TBLS
     Route: 048
  2. AMLODIPINE [Concomitant]
     Active Substance: AMLODIPINE BESYLATE
     Indication: HYPERTENSION
     Dosage: 5 MG IN THE MORNING
     Route: 048
  3. QUETIAPINE-TEVA [Concomitant]
     Indication: DEPRESSION
     Route: 048
     Dates: start: 20150626
  4. DULODET [Concomitant]
     Indication: DEPRESSION
     Dosage: 60 MG IN THE MORNING
     Route: 048
     Dates: start: 20160301
  5. PERINEVA [Concomitant]
     Active Substance: PERINDOPRIL ERBUMINE
     Indication: HYPERTENSION
     Dosage: 4 MG IN THE MORNING
     Route: 048
  6. DUODOPA [Suspect]
     Active Substance: CARBIDOPA\LEVODOPA
     Indication: PARKINSON^S DISEASE
     Dosage: MD 7.0 ML; CD 3.2 ML/H; ED 1.5 ML
     Route: 050
     Dates: start: 20150227
  7. MADOPAR [Concomitant]
     Active Substance: BENSERAZIDE HYDROCHLORIDE\LEVODOPA
     Indication: PARKINSON^S DISEASE
     Dosage: 0.5 TABLET AT 2 A.M.
     Route: 048

REACTIONS (8)
  - Vertigo [Recovered/Resolved]
  - Joint swelling [Recovering/Resolving]
  - Stoma site reaction [Recovering/Resolving]
  - Head injury [Recovering/Resolving]
  - Fall [Recovered/Resolved]
  - Stoma site erythema [Recovering/Resolving]
  - Loss of consciousness [Recovering/Resolving]
  - Catheter site warmth [Not Recovered/Not Resolved]

NARRATIVE: CASE EVENT DATE: 201809
